FAERS Safety Report 25319131 (Version 1)
Quarter: 2025Q2

REPORT INFORMATION
  Report Type: Spontaneous
  Country: US (occurrence: US)
  Receive Date: 20250515
  Receipt Date: 20250515
  Transmission Date: 20250716
  Serious: No
  Sender: SANOFI AVENTIS
  Company Number: US-SA-2024MK000063

PATIENT
  Sex: Female

DRUGS (2)
  1. AFREZZA [Suspect]
     Active Substance: INSULIN HUMAN
     Indication: Type 1 diabetes mellitus
  2. DEVICE [Suspect]
     Active Substance: DEVICE
     Indication: Type 1 diabetes mellitus

REACTIONS (2)
  - Cortisol increased [Unknown]
  - Blood glucose increased [Unknown]
